FAERS Safety Report 19917613 (Version 1)
Quarter: 2021Q4

REPORT INFORMATION
  Report Type: Spontaneous
  Country: US (occurrence: US)
  Receive Date: 20211005
  Receipt Date: 20211005
  Transmission Date: 20220304
  Serious: Yes (Hospitalization, Other)
  Sender: FDA-Public Use
  Company Number: US-AMGEN-USASP2021151782

PATIENT
  Age: 62 Year
  Sex: Female

DRUGS (1)
  1. OTEZLA [Suspect]
     Active Substance: APREMILAST
     Indication: Psoriasis
     Dosage: 30 MILLIGRAM, BID
     Route: 048
     Dates: start: 20201117

REACTIONS (2)
  - Sepsis [Not Recovered/Not Resolved]
  - Nephrolithiasis [Not Recovered/Not Resolved]

NARRATIVE: CASE EVENT DATE: 20210821
